FAERS Safety Report 16975854 (Version 1)
Quarter: 2019Q4

REPORT INFORMATION
  Report Type: Spontaneous
  Country: US (occurrence: US)
  Receive Date: 20191030
  Receipt Date: 20191030
  Transmission Date: 20200122
  Serious: Yes (Hospitalization, Other)
  Sender: FDA-Public Use
  Company Number: US-ASTRAZENECA-2019SF51177

PATIENT
  Sex: Male

DRUGS (1)
  1. CRESTOR [Suspect]
     Active Substance: ROSUVASTATIN CALCIUM
     Indication: BLOOD CHOLESTEROL INCREASED
     Dosage: UNKNOWN
     Route: 048

REACTIONS (14)
  - Pneumonia [Unknown]
  - Muscle necrosis [Unknown]
  - Immunosuppression [Unknown]
  - Malaise [Recovered/Resolved]
  - Nasopharyngitis [Unknown]
  - Autoimmune disorder [Unknown]
  - Speech disorder [Unknown]
  - Myalgia [Recovered/Resolved]
  - Gait disturbance [Unknown]
  - Dyspnoea [Unknown]
  - Blood cholesterol decreased [Recovered/Resolved]
  - Confusional state [Recovered/Resolved]
  - Cerebrovascular accident [Unknown]
  - Nervous system disorder [Unknown]

NARRATIVE: CASE EVENT DATE: 2012
